FAERS Safety Report 18676030 (Version 1)
Quarter: 2020Q4

REPORT INFORMATION
  Report Type: Spontaneous
  Country: US (occurrence: US)
  Receive Date: 20201228
  Receipt Date: 20201228
  Transmission Date: 20210114
  Serious: No
  Sender: FDA-Public Use
  Company Number: None

PATIENT
  Sex: Female

DRUGS (1)
  1. TREMFYA [Suspect]
     Active Substance: GUSELKUMAB
     Indication: PSORIASIS
     Dosage: ?          OTHER FREQUENCY:EVERY 8 WEEKS ;?
     Route: 058
     Dates: start: 20201008

REACTIONS (3)
  - Incorrect dose administered by device [None]
  - Wrong technique in product usage process [None]
  - Injection site extravasation [None]
